FAERS Safety Report 7349998-2 (Version None)
Quarter: 2011Q1

REPORT INFORMATION
  Report Type: 
  Country: None (occurrence: None)
  Receive Date: 20110314
  Receipt Date: 20110308
  Transmission Date: 20110831
  Serious: Yes (Other)
  Sender: FDA-Public Use
  Company Number: GB-BRISTOL-MYERS SQUIBB COMPANY-15511405

PATIENT
  Age: 65 Year
  Sex: Female

DRUGS (1)
  1. QUESTRAN [Suspect]
     Dates: start: 20060101

REACTIONS (2)
  - CARCINOID TUMOUR OF THE SMALL BOWEL [None]
  - MEDICATION ERROR [None]
